FAERS Safety Report 8447270-0 (Version None)
Quarter: 2012Q2

REPORT INFORMATION
  Report Type: 
  Country: None (occurrence: None)
  Receive Date: 20120619
  Receipt Date: 20120611
  Transmission Date: 20120825
  Serious: Yes (Other)
  Sender: FDA-Public Use
  Company Number: PHHY2011CA105801

PATIENT
  Sex: Male

DRUGS (2)
  1. SINEMET [Concomitant]
     Indication: PARKINSON'S DISEASE
     Dates: start: 20110901
  2. SANDOSTATIN LAR [Suspect]
     Indication: METASTATIC CARCINOID TUMOUR
     Dosage: 40 MG, QMO
     Route: 030
     Dates: start: 20110325

REACTIONS (17)
  - NEOPLASM PROGRESSION [None]
  - FATIGUE [None]
  - GENERAL PHYSICAL HEALTH DETERIORATION [None]
  - DECREASED APPETITE [None]
  - CACHEXIA [None]
  - MOBILITY DECREASED [None]
  - ASTHENIA [None]
  - ABDOMINAL PAIN [None]
  - METASTASIS [None]
  - ENURESIS [None]
  - ASCITES [None]
  - MEMORY IMPAIRMENT [None]
  - OEDEMA [None]
  - ABDOMINAL DISTENSION [None]
  - CONSTIPATION [None]
  - TERMINAL STATE [None]
  - WEIGHT INCREASED [None]
